FAERS Safety Report 15260054 (Version 1)
Quarter: 2018Q3

REPORT INFORMATION
  Report Type: Spontaneous
  Country: US (occurrence: US)
  Receive Date: 20180809
  Receipt Date: 20180809
  Transmission Date: 20181010
  Serious: Yes (Other)
  Sender: FDA-Public Use
  Company Number: US-SHIRE-US201830374

PATIENT
  Age: 66 Year
  Sex: Male

DRUGS (1)
  1. GATTEX [Suspect]
     Active Substance: TEDUGLUTIDE\WATER
     Indication: SHORT-BOWEL SYNDROME
     Dosage: UNK, 1X/DAY:QD (DOSE: 0.1190; UNIT: UNKNOWN) DAILY
     Route: 065
     Dates: start: 20180615, end: 20180728

REACTIONS (4)
  - Fluid overload [Unknown]
  - Arthralgia [Unknown]
  - Swelling [Unknown]
  - Gout [Unknown]

NARRATIVE: CASE EVENT DATE: 20180728
